FAERS Safety Report 24698879 (Version 2)
Quarter: 2025Q1

REPORT INFORMATION
  Report Type: Spontaneous
  Country: US (occurrence: US)
  Receive Date: 20241205
  Receipt Date: 20250122
  Transmission Date: 20250409
  Serious: No
  Sender: Kenvue
  Company Number: US-KENVUE-20241104813

PATIENT
  Sex: Male

DRUGS (4)
  1. MENS ROGAINE EXTRA STRENGTH [Suspect]
     Active Substance: MINOXIDIL
     Indication: Alopecia
     Dosage: HALF A CAP FULL
     Route: 061
     Dates: start: 20241017, end: 20241110
  2. MENS ROGAINE EXTRA STRENGTH [Suspect]
     Active Substance: MINOXIDIL
     Dosage: HALF A CAP FULL
     Route: 061
     Dates: start: 20241018
  3. ROSUVASTATIN [Concomitant]
     Active Substance: ROSUVASTATIN
     Indication: Blood cholesterol
     Route: 065
     Dates: start: 202401
  4. VITAMINS [Concomitant]
     Active Substance: VITAMINS

REACTIONS (9)
  - Fatigue [Unknown]
  - Abdominal distension [Unknown]
  - Inappropriate schedule of product administration [Unknown]
  - Underdose [Unknown]
  - Migraine [Unknown]
  - Skin irritation [Unknown]
  - Pruritus [Unknown]
  - Alopecia [Unknown]
  - Fluid retention [Unknown]

NARRATIVE: CASE EVENT DATE: 20240101
